FAERS Safety Report 8178819-3 (Version None)
Quarter: 2012Q1

REPORT INFORMATION
  Report Type: 
  Country: None (occurrence: None)
  Receive Date: 20120301
  Receipt Date: 20120220
  Transmission Date: 20120608
  Serious: Yes (Other)
  Sender: FDA-Public Use
  Company Number: GB-TEVA-300852ISR

PATIENT
  Age: 47 Year
  Sex: Male

DRUGS (4)
  1. OMEPRAZOLE [Suspect]
     Indication: GASTROOESOPHAGEAL REFLUX DISEASE
  2. FLUOXETINE [Interacting]
     Indication: OBSESSIVE-COMPULSIVE DISORDER
  3. CLOZAPINE [Interacting]
     Indication: SCHIZOPHRENIA
     Route: 048
     Dates: start: 20090728
  4. HYOSCINE [Concomitant]
     Indication: SALIVARY HYPERSECRETION
     Dosage: 300 MICROGRAM;
     Dates: start: 20090701

REACTIONS (13)
  - ABDOMINAL PAIN [None]
  - DECREASED APPETITE [None]
  - COUGH [None]
  - BLOOD ALKALINE PHOSPHATASE INCREASED [None]
  - C-REACTIVE PROTEIN INCREASED [None]
  - IMMUNODEFICIENCY [None]
  - WEIGHT DECREASED [None]
  - DRUG INTERACTION [None]
  - PROTEIN TOTAL DECREASED [None]
  - LETHARGY [None]
  - DIARRHOEA [None]
  - HYPERHIDROSIS [None]
  - GAMMA-GLUTAMYLTRANSFERASE INCREASED [None]
